FAERS Safety Report 7421764-9 (Version None)
Quarter: 2011Q2

REPORT INFORMATION
  Report Type: 
  Country: None (occurrence: None)
  Receive Date: 20110407
  Receipt Date: 20110325
  Transmission Date: 20111010
  Serious: Yes (Hospitalization)
  Sender: FDA-Public Use
  Company Number: 027075

PATIENT
  Sex: Male

DRUGS (2)
  1. AZATHIOPRINE [Concomitant]
  2. CIMZIA [Suspect]
     Indication: CROHN'S DISEASE
     Dosage: (SUBCUTANEOUS)
     Route: 057

REACTIONS (2)
  - SMALL INTESTINAL OBSTRUCTION [None]
  - ABDOMINAL ADHESIONS [None]
